FAERS Safety Report 21950053 (Version 1)
Quarter: 2023Q1

REPORT INFORMATION
  Report Type: Spontaneous
  Country: DE (occurrence: DE)
  Receive Date: 20230203
  Receipt Date: 20230203
  Transmission Date: 20230417
  Serious: Yes (Death, Hospitalization, Other)
  Sender: FDA-Public Use
  Company Number: DE-DCGMA-22200170

PATIENT
  Age: 86 Year
  Sex: Male
  Weight: 64 kg

DRUGS (1)
  1. JARDIANCE [Suspect]
     Active Substance: EMPAGLIFLOZIN
     Indication: Product used for unknown indication
     Route: 048
     Dates: start: 20221118, end: 20221128

REACTIONS (2)
  - Vasculitis [Fatal]
  - Necrosis [Fatal]
